FAERS Safety Report 18156397 (Version 6)
Quarter: 2022Q3

REPORT INFORMATION
  Report Type: Spontaneous
  Country: US (occurrence: US)
  Receive Date: 20200817
  Receipt Date: 20220913
  Transmission Date: 20221026
  Serious: No
  Sender: FDA-Public Use
  Company Number: US-PFIZER INC-2020313312

PATIENT
  Age: 78 Year
  Sex: Male

DRUGS (2)
  1. BOSULIF [Suspect]
     Active Substance: BOSUTINIB MONOHYDRATE
     Indication: Chronic myeloid leukaemia
     Dosage: 100 MG, DAILY (TAKE 1 TAB BY MOUTH DAILY MONDAY-FRIDAY)
     Route: 048
  2. BOSULIF [Suspect]
     Active Substance: BOSUTINIB MONOHYDRATE
     Dosage: UNK, MONDAY, WEDNESDAY, FRIDAY

REACTIONS (3)
  - Off label use [Unknown]
  - Hypoacusis [Unknown]
  - Intentional dose omission [Unknown]
